FAERS Safety Report 12397548 (Version 1)
Quarter: 2016Q2

REPORT INFORMATION
  Report Type: Spontaneous
  Country: US (occurrence: None)
  Receive Date: 20160523
  Receipt Date: 20160523
  Transmission Date: 20160815
  Serious: Yes (Hospitalization)
  Sender: FDA-Public Use
  Company Number: None

PATIENT
  Age: 78 Year
  Sex: Male
  Weight: 95.7 kg

DRUGS (2)
  1. OLANZAPINE. [Suspect]
     Active Substance: OLANZAPINE
     Indication: AGITATION
     Dosage: 2.5 MG PM PO
     Route: 048
     Dates: start: 20160429, end: 20160509
  2. PREDNISONE. [Suspect]
     Active Substance: PREDNISONE
     Indication: CHRONIC OBSTRUCTIVE PULMONARY DISEASE
     Route: 048
     Dates: start: 20160504, end: 20160505

REACTIONS (4)
  - Refusal of treatment by patient [None]
  - Confusional state [None]
  - Psychotic disorder [None]
  - Poor quality sleep [None]

NARRATIVE: CASE EVENT DATE: 20160505
